FAERS Safety Report 23155598 (Version 2)
Quarter: 2023Q4

REPORT INFORMATION
  Report Type: Report from Study
  Country: CA (occurrence: CA)
  Receive Date: 20231107
  Receipt Date: 20231208
  Transmission Date: 20240109
  Serious: Yes (Other)
  Sender: FDA-Public Use
  Company Number: CA-Eisai-EC-2023-152087

PATIENT
  Age: 62 Year
  Sex: Female

DRUGS (2)
  1. LENVATINIB [Suspect]
     Active Substance: LENVATINIB
     Indication: Endometrial cancer
     Dosage: UNKNOWN DOSE AND FREQUENCY
     Route: 048
  2. PEMBROLIZUMAB [Suspect]
     Active Substance: PEMBROLIZUMAB
     Indication: Endometrial cancer
     Route: 042

REACTIONS (4)
  - Ascites [Unknown]
  - Weight fluctuation [Unknown]
  - Complication associated with device [Unknown]
  - Malignant neoplasm progression [Unknown]
